FAERS Safety Report 9169722 (Version 3)
Quarter: 2013Q3

REPORT INFORMATION
  Report Type: Spontaneous
  Country: FR (occurrence: FR)
  Receive Date: 20130318
  Receipt Date: 20130819
  Transmission Date: 20140515
  Serious: Yes (Hospitalization, Other)
  Sender: FDA-Public Use
  Company Number: PHHY2013FR022655

PATIENT
  Age: 79 Year
  Sex: Male

DRUGS (9)
  1. SINTROM [Suspect]
     Dosage: 4 MG
     Route: 048
     Dates: start: 20050110, end: 201302
  2. SINTROM [Suspect]
     Dosage: 0.75
  3. INDAPAMIDE [Suspect]
     Dosage: UNK UKN, UNK
     Dates: start: 20050110, end: 201210
  4. INDAPAMIDE MERCK [Suspect]
     Dosage: 1.5 MG, QD
     Route: 048
     Dates: start: 201210, end: 201302
  5. ALLOPURINOL MERCK [Suspect]
     Indication: GOUT
     Dosage: 200 MG, QD
     Route: 048
  6. ALPRAZOLAM [Suspect]
     Dosage: 0.25 MG, QD
     Route: 048
  7. MONO TILDIEM [Suspect]
     Dosage: 200 MG, QD
     Route: 048
     Dates: end: 201302
  8. ATORVASTATIN [Suspect]
     Dosage: 10 MG, QD
     Route: 048
  9. PAROXETINE [Suspect]
     Dosage: 20 MG, QD
     Route: 048
     Dates: start: 20130103

REACTIONS (7)
  - Autoimmune haemolytic anaemia [Recovering/Resolving]
  - Pallor [Unknown]
  - Asthenia [Unknown]
  - Blood bilirubin unconjugated increased [Unknown]
  - Coombs direct test positive [Unknown]
  - Chromaturia [Unknown]
  - Thrombocytopenia [Recovering/Resolving]
